FAERS Safety Report 9188077 (Version 2)
Quarter: 2013Q2

REPORT INFORMATION
  Report Type: Report from Study
  Country: JP (occurrence: JP)
  Receive Date: 20130325
  Receipt Date: 20130403
  Transmission Date: 20140414
  Serious: Yes (Hospitalization)
  Sender: FDA-Public Use
  Company Number: JP-ROCHE-1201334

PATIENT
  Age: 72 Year
  Sex: Female
  Weight: 49.7 kg

DRUGS (15)
  1. TRASTUZUMAB [Suspect]
     Indication: BREAST CANCER
     Dosage: VIAL LOADING DOSE
     Route: 042
     Dates: start: 20130304
  2. TRASTUZUMAB [Suspect]
     Dosage: MAINTAINENCE DOSE
     Route: 042
  3. DOCETAXEL [Suspect]
     Indication: BREAST CANCER
     Dosage: VIAL DATE OF LAST DOSE PRIOR TO SAE 04/MAR/2013
     Route: 065
     Dates: start: 20130304
  4. CARBOPLATIN [Suspect]
     Indication: BREAST CANCER
     Dosage: VIAL, DATE OF LAST DOSE PRIOR TO SAE 04/MAR/2013
     Route: 065
     Dates: start: 20130304
  5. CELECOXIB [Suspect]
     Indication: BREAST CANCER
     Route: 065
     Dates: start: 2007
  6. ETHYL ICOSAPENTATE [Concomitant]
     Route: 065
     Dates: start: 1993
  7. LIMAPROST ALFADEX [Concomitant]
     Route: 065
     Dates: start: 2007
  8. GLICLAZIDE [Concomitant]
     Route: 065
     Dates: start: 1993
  9. FAMOTIDINE [Concomitant]
     Route: 065
     Dates: start: 1993
  10. AMLODIPINE BESILATE [Concomitant]
     Route: 065
     Dates: start: 1993
  11. EZETIMIBE [Concomitant]
     Route: 065
     Dates: start: 1993
  12. VALSARTAN [Concomitant]
     Route: 065
     Dates: start: 1993
  13. TOCOPHEROL NICOTINATE [Concomitant]
     Route: 065
     Dates: start: 1993
  14. VOGLIBOSE [Concomitant]
     Route: 065
     Dates: start: 1993
  15. PLACEBO [Suspect]
     Indication: BREAST CANCER
     Route: 042

REACTIONS (1)
  - Duodenal ulcer perforation [Recovered/Resolved]
